FAERS Safety Report 6090912-8 (Version None)
Quarter: 2009Q1

REPORT INFORMATION
  Report Type: 
  Country: None (occurrence: None)
  Receive Date: 20090220
  Receipt Date: 20090204
  Transmission Date: 20090719
  Serious: Yes (Other)
  Sender: FDA-Public Use
  Company Number: 2009S1002008

PATIENT
  Age: 21 Year
  Sex: Male

DRUGS (2)
  1. AZATHIOPRINE [Suspect]
     Indication: CROHN'S DISEASE
     Dosage: 50 MG
     Dates: start: 20050108, end: 20080201
  2. ASACOL [Concomitant]

REACTIONS (1)
  - PARANOIA [None]
